FAERS Safety Report 7725749-4 (Version None)
Quarter: 2011Q3

REPORT INFORMATION
  Report Type: 
  Country: None (occurrence: None)
  Receive Date: 20110830
  Receipt Date: 20110816
  Transmission Date: 20111222
  Serious: Yes (Death)
  Sender: FDA-Public Use
  Company Number: 2011-339

PATIENT
  Sex: Female

DRUGS (1)
  1. FAZACLO ODT [Suspect]
     Dosage: 450 MG, QD, ORAL
     Route: 048
     Dates: start: 20101029

REACTIONS (1)
  - DEATH [None]
